FAERS Safety Report 19230646 (Version 1)
Quarter: 2021Q2

REPORT INFORMATION
  Report Type: Spontaneous
  Country: US (occurrence: US)
  Receive Date: 20210506
  Receipt Date: 20210506
  Transmission Date: 20210717
  Serious: Yes (Death)
  Sender: FDA-Public Use
  Company Number: None

PATIENT
  Age: 81 Year
  Sex: Male

DRUGS (19)
  1. ACETAMINOPHEN. [Concomitant]
     Active Substance: ACETAMINOPHEN
  2. TIZANIDINE. [Concomitant]
     Active Substance: TIZANIDINE
  3. AMLODIPINE [Concomitant]
     Active Substance: AMLODIPINE BESYLATE
  4. CETIRIZINE [Concomitant]
     Active Substance: CETIRIZINE HYDROCHLORIDE
  5. GABAPENTIN. [Concomitant]
     Active Substance: GABAPENTIN
  6. PANTOPRAZOLE [Concomitant]
     Active Substance: PANTOPRAZOLE
  7. ANCEF [Concomitant]
     Active Substance: CEFAZOLIN SODIUM
  8. ASPIRIN. [Concomitant]
     Active Substance: ASPIRIN
  9. GABAPENTIN. [Suspect]
     Active Substance: GABAPENTIN
     Indication: NEURALGIA
     Dosage: ?          QUANTITY:1 CAPSULE(S);?
     Route: 048
     Dates: start: 20210317, end: 20210322
  10. BETHANECHOL [Concomitant]
     Active Substance: BETHANECHOL
  11. SENNA TAMSULOSIN [Concomitant]
  12. MELATONIN [Concomitant]
     Active Substance: MELATONIN
  13. HEPARIN [Concomitant]
     Active Substance: HEPARIN SODIUM
  14. MULTIVITAMIN [Concomitant]
     Active Substance: VITAMINS
  15. BISACODYL. [Concomitant]
     Active Substance: BISACODYL
  16. HYDRALAZINE [Concomitant]
     Active Substance: HYDRALAZINE HYDROCHLORIDE
  17. INSULIN LISPRO [Concomitant]
     Active Substance: INSULIN LISPRO
  18. LOSARTAN. [Concomitant]
     Active Substance: LOSARTAN
  19. POLYETHYLENE GLYCOL [Concomitant]
     Active Substance: POLYETHYLENE GLYCOLS

REACTIONS (10)
  - Aspiration [None]
  - Myocardial infarction [None]
  - Sleep talking [None]
  - Hypopnoea [None]
  - Brain death [None]
  - Bedridden [None]
  - Abnormal dreams [None]
  - Somnolence [None]
  - Hallucination, visual [None]
  - Aggression [None]

NARRATIVE: CASE EVENT DATE: 20210323
